FAERS Safety Report 8769844 (Version 2)
Quarter: 2013Q4

REPORT INFORMATION
  Report Type: Report from Study
  Country: JP (occurrence: JP)
  Receive Date: 20120905
  Receipt Date: 20131105
  Transmission Date: 20140711
  Serious: Yes (Hospitalization)
  Sender: FDA-Public Use
  Company Number: JP-009507513-1209JPN000569

PATIENT
  Age: 43 Year
  Sex: Male
  Weight: 75 kg

DRUGS (6)
  1. PEGINTRON [Suspect]
     Indication: HEPATITIS C
     Dosage: 1.5 MICROGRAM PER KILOGRAM, QW
     Route: 058
     Dates: start: 20120210, end: 20120720
  2. REBETOL [Suspect]
     Indication: HEPATITIS C
     Dosage: 800 MG, QD
     Route: 048
     Dates: start: 20120210, end: 20120726
  3. TELAVIC [Suspect]
     Indication: HEPATITIS C
     Dosage: 2250 MG, QD
     Route: 048
     Dates: start: 20120210, end: 20120503
  4. TELAVIC [Suspect]
     Dosage: 2250 MG, QD
     Route: 048
     Dates: end: 20120726
  5. GASTER D [Concomitant]
     Indication: GASTRIC ULCER
     Dosage: 40 MG, QD
     Route: 048
  6. ALLEGRA [Concomitant]
     Indication: PRURITUS
     Dosage: 120 MG, QD
     Route: 048

REACTIONS (1)
  - Tenosynovitis [Recovered/Resolved]
